FAERS Safety Report 21525540 (Version 2)
Quarter: 2022Q4

REPORT INFORMATION
  Report Type: Spontaneous
  Country: US (occurrence: US)
  Receive Date: 20221030
  Receipt Date: 20221105
  Transmission Date: 20230112
  Serious: Yes (Hospitalization)
  Sender: FDA-Public Use
  Company Number: US-drreddys-LIT/USA/22/0156441

PATIENT
  Age: 69 Year
  Sex: Male

DRUGS (3)
  1. POSACONAZOLE [Suspect]
     Active Substance: POSACONAZOLE
     Indication: Candida infection
     Route: 048
  2. POSACONAZOLE [Suspect]
     Active Substance: POSACONAZOLE
     Indication: Empyema
  3. POSACONAZOLE [Suspect]
     Active Substance: POSACONAZOLE
     Indication: Candida infection

REACTIONS (5)
  - Candida infection [Unknown]
  - Disease progression [Unknown]
  - Empyema [Unknown]
  - Candida infection [Unknown]
  - Drug ineffective [Unknown]
